FAERS Safety Report 12294969 (Version 1)
Quarter: 2016Q2

REPORT INFORMATION
  Report Type: Spontaneous
  Country: None (occurrence: None)
  Receive Date: 20160421
  Receipt Date: 20160421
  Transmission Date: 20160815
  Serious: Yes (Disabling, Other)
  Sender: FDA-Public Use
  Company Number: None

PATIENT
  Age: 35 Year
  Sex: Female
  Weight: 51.26 kg

DRUGS (5)
  1. H.P. ACTHAR [Suspect]
     Active Substance: CORTICOTROPIN
     Indication: MULTIPLE SCLEROSIS
     Dosage: 80 UNITS ONCE A DAY INTO THE MUSCLE
     Route: 030
     Dates: start: 20160419, end: 20160419
  2. TOPAMAX [Concomitant]
     Active Substance: TOPIRAMATE
  3. UNISOM SLEEPTABS [Concomitant]
     Active Substance: DOXYLAMINE SUCCINATE
  4. YASMIN [Concomitant]
     Active Substance: DROSPIRENONE\ETHINYL ESTRADIOL
  5. SPIROLACTONONE [Concomitant]

REACTIONS (9)
  - Insomnia [None]
  - Heart rate increased [None]
  - Pain in extremity [None]
  - Cardiac disorder [None]
  - Chest pain [None]
  - Dyspnoea [None]
  - Adverse drug reaction [None]
  - Hyperhidrosis [None]
  - Flushing [None]

NARRATIVE: CASE EVENT DATE: 20160419
